FAERS Safety Report 7367679-6 (Version None)
Quarter: 2011Q1

REPORT INFORMATION
  Report Type: 
  Country: None (occurrence: None)
  Receive Date: 20110311
  Receipt Date: 20110225
  Transmission Date: 20110831
  Serious: Yes (Hospitalization, Other)
  Sender: FDA-Public Use
  Company Number: 012635

PATIENT
  Sex: Female

DRUGS (15)
  1. CERTOLIZUMAB PEGOL (CERTOLIZUMAB PEGOL) [Suspect]
     Indication: RHEUMATOID ARTHRITIS
     Dosage: (400 MG, C87041 SUBCUTANEOUS), (400 MG 1X/4 WEEKS SUBCUTANEOUS)
     Route: 057
     Dates: start: 20100107
  2. CERTOLIZUMAB PEGOL (CERTOLIZUMAB PEGOL) [Suspect]
     Indication: RHEUMATOID ARTHRITIS
     Dosage: (400 MG, C87041 SUBCUTANEOUS), (400 MG 1X/4 WEEKS SUBCUTANEOUS)
     Route: 057
     Dates: start: 20090625, end: 20091224
  3. ALENDRONATE SODIUM [Concomitant]
  4. LANSOPRAZOLE [Concomitant]
  5. CEFDINIR [Concomitant]
  6. PREDNISOLONE [Suspect]
     Indication: RHEUMATOID ARTHRITIS
     Dosage: (5 MG ORAL)
     Route: 048
     Dates: start: 20070524
  7. FOLIC ACID [Concomitant]
  8. METHOTREXATE [Concomitant]
  9. PIRENOXINE [Concomitant]
  10. OCTOTIAMINE [Concomitant]
  11. REBAMIPIDE [Concomitant]
  12. INDOMETHACIN SODIUM [Concomitant]
  13. ROSUVASTATIN CALCIUM [Concomitant]
  14. ISONIAZID [Concomitant]
  15. LOXOPROFEN SODIUM [Concomitant]

REACTIONS (5)
  - ENDOMETRIOSIS [None]
  - CATARACT [None]
  - CYSTITIS [None]
  - HAEMORRHAGIC OVARIAN CYST [None]
  - UTERINE LEIOMYOMA [None]
